FAERS Safety Report 14918238 (Version 1)
Quarter: 2018Q2

REPORT INFORMATION
  Report Type: Spontaneous
  Country: GB (occurrence: GB)
  Receive Date: 20180521
  Receipt Date: 20180521
  Transmission Date: 20180711
  Serious: Yes (Hospitalization, Other)
  Sender: FDA-Public Use
  Company Number: PHHY2018GB001415

PATIENT
  Sex: Female

DRUGS (9)
  1. PROMETHAZINE [Suspect]
     Active Substance: PROMETHAZINE\PROMETHAZINE HYDROCHLORIDE
     Indication: PRODUCT USED FOR UNKNOWN INDICATION
     Dosage: UNK
     Route: 065
  2. BISOPROLOL [Concomitant]
     Active Substance: BISOPROLOL
     Indication: PRODUCT USED FOR UNKNOWN INDICATION
     Dosage: 2.5 MG, UNK
     Route: 065
  3. ZIMOVANE [Concomitant]
     Active Substance: ZOPICLONE
     Dosage: 2 DF, QD
     Route: 065
     Dates: start: 201801
  4. OMEPRAZOLE. [Suspect]
     Active Substance: OMEPRAZOLE
     Indication: PRODUCT USED FOR UNKNOWN INDICATION
     Dosage: 2 DF, QD
     Route: 048
  5. FUROSEMIDE. [Concomitant]
     Active Substance: FUROSEMIDE
     Indication: BLOOD PRESSURE ABNORMAL
     Dosage: 40 MG, UNK
     Route: 065
  6. IVABRADINE [Concomitant]
     Active Substance: IVABRADINE
     Indication: PRODUCT USED FOR UNKNOWN INDICATION
     Dosage: 5 MG, UNK
     Route: 065
  7. PERINDOPRIL [Concomitant]
     Active Substance: PERINDOPRIL
     Indication: PRODUCT USED FOR UNKNOWN INDICATION
     Dosage: UNK
  8. SPIRONOLACTONE. [Concomitant]
     Active Substance: SPIRONOLACTONE
     Indication: PRODUCT USED FOR UNKNOWN INDICATION
     Route: 065
  9. ZIMOVANE [Concomitant]
     Active Substance: ZOPICLONE
     Indication: SEDATIVE THERAPY
     Dosage: 4 DF, QD
     Route: 065

REACTIONS (17)
  - Unevaluable event [Recovered/Resolved]
  - Heart rate increased [Unknown]
  - Dysuria [Recovered/Resolved]
  - Restlessness [Recovered/Resolved]
  - Photosensitivity reaction [Recovered/Resolved]
  - Confusional state [Recovered/Resolved]
  - Vision blurred [Recovered/Resolved]
  - Decreased appetite [Recovered/Resolved]
  - Nightmare [Recovered/Resolved]
  - Dizziness [Recovered/Resolved]
  - Hypoaesthesia [Unknown]
  - Tremor [Unknown]
  - Dry mouth [Recovered/Resolved]
  - Suicidal ideation [Unknown]
  - Hot flush [Recovered/Resolved]
  - Syncope [Recovered/Resolved]
  - Disorientation [Unknown]

NARRATIVE: CASE EVENT DATE: 20180113
